FAERS Safety Report 25638976 (Version 2)
Quarter: 2025Q3

REPORT INFORMATION
  Report Type: Spontaneous
  Country: GB (occurrence: GB)
  Receive Date: 20250804
  Receipt Date: 20250805
  Transmission Date: 20251020
  Serious: Yes (Other)
  Sender: INSUD PHARMA
  Company Number: GB-MHRA-EMIS-59020-8073a805-e9de-4d51-8f09-61c10c9962d4

PATIENT
  Age: 18 Year
  Sex: Female
  Weight: 99 kg

DRUGS (1)
  1. SLYND [Suspect]
     Active Substance: DROSPIRENONE
     Dosage: ONE TABLET DAILY AT THE SAME TIME EACH DAY
     Dates: start: 20250221, end: 20250718

REACTIONS (3)
  - Joint swelling [Unknown]
  - Lymphadenopathy [Unknown]
  - Arthralgia [Unknown]
